FAERS Safety Report 8853239 (Version 1)
Quarter: 2012Q4

REPORT INFORMATION
  Report Type: 
  Country: FR (occurrence: FR)
  Receive Date: 20121022
  Receipt Date: 20121022
  Transmission Date: 20130627
  Serious: Yes (Other)
  Sender: FDA-Public Use
  Company Number: CHPA2012FR021922

PATIENT
  Age: 48 Year
  Sex: Male

DRUGS (2)
  1. NICOTINELL [Suspect]
     Indication: SMOKING CESSATION THERAPY
     Dosage: 4 mg, UNK
  2. SIMVASTATIN [Concomitant]
     Dosage: Unk, Unk

REACTIONS (4)
  - Glaucoma [Unknown]
  - Ocular hyperaemia [Unknown]
  - Dry eye [Unknown]
  - Incorrect drug administration duration [Unknown]
